FAERS Safety Report 18053821 (Version 1)
Quarter: 2020Q3

REPORT INFORMATION
  Report Type: Report from Study
  Country: CA (occurrence: CA)
  Receive Date: 20200722
  Receipt Date: 20200722
  Transmission Date: 20201103
  Serious: Yes (Hospitalization)
  Sender: FDA-Public Use
  Company Number: CA-ACCORD-191497

PATIENT
  Age: 68 Year
  Sex: Female

DRUGS (11)
  1. COSENTYX [Suspect]
     Active Substance: SECUKINUMAB
     Indication: PSORIATIC ARTHROPATHY
     Dosage: 1 EVERY 1 MONTHS
     Route: 058
  2. PREDNISONE. [Concomitant]
     Active Substance: PREDNISONE
     Indication: PSORIATIC ARTHROPATHY
     Dosage: EVERY 1 DAYS
     Route: 048
  3. MOTRIN [Concomitant]
     Active Substance: IBUPROFEN
     Indication: PSORIATIC ARTHROPATHY
     Route: 048
  4. ATIVAN [Concomitant]
     Active Substance: LORAZEPAM
     Indication: ANXIETY
     Route: 065
  5. OXYBUTYNIN. [Concomitant]
     Active Substance: OXYBUTYNIN CHLORIDE
     Indication: CARDIAC DISORDER
     Route: 065
  6. TORADOL [Concomitant]
     Active Substance: KETOROLAC TROMETHAMINE
     Indication: PSORIATIC ARTHROPATHY
     Route: 048
  7. TYLENOL [Concomitant]
     Active Substance: ACETAMINOPHEN
     Indication: PSORIATIC ARTHROPATHY
     Route: 048
  8. AMIODARONE [Concomitant]
     Active Substance: AMIODARONE
     Indication: ANXIETY
     Dosage: 2 EVERY 1 DAYS
     Route: 065
  9. METHOTREXATE. [Suspect]
     Active Substance: METHOTREXATE
     Indication: PSORIATIC ARTHROPATHY
     Dosage: 1 EVERY 1 WEEKS
     Route: 065
  10. COSENTYX [Suspect]
     Active Substance: SECUKINUMAB
     Indication: PSORIATIC ARTHROPATHY
     Dosage: 1 EVERY 1 MONTHS
     Route: 058
  11. LEFLUNOMIDE. [Suspect]
     Active Substance: LEFLUNOMIDE
     Indication: PRODUCT USED FOR UNKNOWN INDICATION
     Route: 065

REACTIONS (19)
  - Memory impairment [Unknown]
  - Swollen joint count increased [Unknown]
  - Fatigue [Unknown]
  - Incoherent [Unknown]
  - Micturition urgency [Unknown]
  - Cystitis [Unknown]
  - Flank pain [Unknown]
  - Nasopharyngitis [Unknown]
  - Oedema peripheral [Unknown]
  - Confusional state [Unknown]
  - Dizziness [Unknown]
  - Musculoskeletal stiffness [Unknown]
  - Therapeutic response shortened [Unknown]
  - Feeling abnormal [Unknown]
  - Speech disorder [Unknown]
  - Disorientation [Unknown]
  - Urinary tract disorder [Unknown]
  - C-reactive protein increased [Unknown]
  - Dysuria [Unknown]
